FAERS Safety Report 14581291 (Version 2)
Quarter: 2018Q1

REPORT INFORMATION
  Report Type: Spontaneous
  Country: US (occurrence: US)
  Receive Date: 20180228
  Receipt Date: 20180306
  Transmission Date: 20180509
  Serious: Yes (Other)
  Sender: FDA-Public Use
  Company Number: US-009507513-1802USA013193

PATIENT
  Age: 19 Year
  Sex: Female
  Weight: 54.42 kg

DRUGS (1)
  1. NEXPLANON [Suspect]
     Active Substance: ETONOGESTREL
     Indication: CONTRACEPTION
     Dosage: 1 IMPLANT, 3 YEARS. LEFT ARM IMPLANT
     Route: 059
     Dates: start: 20180213

REACTIONS (6)
  - Inappropriate schedule of drug administration [Unknown]
  - Abdominal pain [Unknown]
  - Insomnia [Unknown]
  - Pregnancy with implant contraceptive [Not Recovered/Not Resolved]
  - Maternal exposure during pregnancy [Unknown]
  - Unintended pregnancy [Not Recovered/Not Resolved]

NARRATIVE: CASE EVENT DATE: 201802
